FAERS Safety Report 14475796 (Version 1)
Quarter: 2018Q1

REPORT INFORMATION
  Report Type: Spontaneous
  Country: CA (occurrence: CA)
  Receive Date: 20180201
  Receipt Date: 20180201
  Transmission Date: 20180509
  Serious: Yes (Hospitalization)
  Sender: FDA-Public Use
  Company Number: CA-GEHC-2018CSU000406

PATIENT

DRUGS (1)
  1. OMNIPAQUE [Suspect]
     Active Substance: IOHEXOL
     Indication: PRODUCT USED FOR UNKNOWN INDICATION
     Dosage: 75 ML, SINGLE
     Route: 042
     Dates: start: 20180124, end: 20180124

REACTIONS (3)
  - Blood pressure increased [Unknown]
  - Dysphonia [Unknown]
  - Throat tightness [Unknown]

NARRATIVE: CASE EVENT DATE: 20180124
